FAERS Safety Report 12784342 (Version 1)
Quarter: 2016Q3

REPORT INFORMATION
  Report Type: Spontaneous
  Country: DE (occurrence: DE)
  Receive Date: 20160927
  Receipt Date: 20160927
  Transmission Date: 20161109
  Serious: Yes (Other)
  Sender: FDA-Public Use
  Company Number: DE-BEH-200711928

PATIENT
  Age: 35 Year
  Sex: Male

DRUGS (7)
  1. MIDAZOLAM [Concomitant]
     Active Substance: MIDAZOLAM\MIDAZOLAM HYDROCHLORIDE
     Dates: start: 20070509
  2. FENTANYL. [Concomitant]
     Active Substance: FENTANYL
     Dates: start: 20070509
  3. AMBROHEXAL [Concomitant]
     Active Substance: AMBROXOL HYDROCHLORIDE
     Route: 042
  4. FRAGMIN P FORTE [Concomitant]
     Active Substance: DALTEPARIN SODIUM
  5. SANDOGLOBULIN [Suspect]
     Active Substance: HUMAN IMMUNOGLOBULIN G
     Indication: GUILLAIN-BARRE SYNDROME
     Dosage: DAILY DOSE QUANTITY: 36, DAILY DOSE UNIT: G
     Route: 042
     Dates: start: 20070509, end: 20070514
  6. CEFTRIXON [Concomitant]
     Indication: RESPIRATORY TRACT INFECTION
     Dosage: DAILY DOSE QUANTITY: 2, DAILY DOSE UNIT: G
     Route: 042
     Dates: start: 20070509
  7. PANTOZOL [Concomitant]
     Active Substance: PANTOPRAZOLE SODIUM
     Route: 042

REACTIONS (15)
  - Pyrexia [Recovering/Resolving]
  - Aspartate aminotransferase increased [Recovering/Resolving]
  - Rash [Recovering/Resolving]
  - Glomerular filtration rate [Recovering/Resolving]
  - Sepsis [None]
  - Renal impairment [None]
  - C-reactive protein increased [Recovering/Resolving]
  - Lung infiltration [Recovering/Resolving]
  - Pneumonia aspiration [Recovering/Resolving]
  - Pneumonia staphylococcal [Recovering/Resolving]
  - Alanine aminotransferase increased [Recovering/Resolving]
  - Blood creatine phosphokinase increased [Recovering/Resolving]
  - Blood creatinine increased [Recovering/Resolving]
  - Glomerular filtration rate decreased [None]
  - Platelet count decreased [None]

NARRATIVE: CASE EVENT DATE: 20070511
